FAERS Safety Report 5310653-1 (Version None)
Quarter: 2007Q2

REPORT INFORMATION
  Report Type: 
  Country: None (occurrence: None)
  Receive Date: 20070428
  Receipt Date: 20070416
  Transmission Date: 20071010
  Serious: Yes (Other)
  Sender: FDA-Public Use
  Company Number: BR-PFIZER INC-2007031516

PATIENT
  Sex: Female

DRUGS (3)
  1. PROVERA [Suspect]
     Indication: AMENORRHOEA
     Route: 048
  2. PROVERA [Suspect]
     Route: 048
     Dates: start: 20060614, end: 20060623
  3. CLOMID [Concomitant]
     Route: 048
     Dates: start: 20060601, end: 20060601

REACTIONS (1)
  - HYPERTENSION [None]
